FAERS Safety Report 5114672-X (Version None)
Quarter: 2006Q3

REPORT INFORMATION
  Report Type: 
  Country: None (occurrence: None)
  Receive Date: 20060926
  Receipt Date: 20060914
  Transmission Date: 20061208
  Serious: Yes (Death, Other)
  Sender: FDA-Public Use
  Company Number: US-JNJFOC-20050704735

PATIENT
  Sex: Female

DRUGS (11)
  1. REMICADE [Suspect]
     Indication: RHEUMATOID ARTHRITIS
     Route: 042
  2. LOPRESSOR [Concomitant]
  3. SYNTHROID [Concomitant]
  4. FOLIC ACID [Concomitant]
  5. METHOTREXATE [Concomitant]
  6. K-DUR 10 [Concomitant]
  7. SERAVENT INHALER [Concomitant]
  8. VITAMIN E [Concomitant]
  9. ASCORBIC ACID [Concomitant]
  10. TYLENOL [Concomitant]
     Dosage: AS NEEDED
  11. ALEVE (CAPLET) [Concomitant]
     Dosage: AS NEEDED

REACTIONS (5)
  - CALCIUM METABOLISM DISORDER [None]
  - CHRONIC OBSTRUCTIVE PULMONARY DISEASE [None]
  - DEATH [None]
  - MALIGNANT RESPIRATORY TRACT NEOPLASM [None]
  - RHEUMATOID ARTHRITIS [None]
